FAERS Safety Report 8130667 (Version 6)
Quarter: 2014Q1

REPORT INFORMATION
  Report Type: Spontaneous
  Country: US (occurrence: US)
  Receive Date: 20110912
  Receipt Date: 20140225
  Transmission Date: 20141002
  Serious: Yes (Life-Threatening, Hospitalization)
  Sender: FDA-Public Use
  Company Number: US-JNJFOC-20110902986

PATIENT
  Age: 4 Year
  Sex: Male
  Weight: 16.4 kg

DRUGS (4)
  1. TYLENOL [Suspect]
     Indication: PYREXIA
     Dosage: 2 TABLESPOONS 3 TIMES PER DAY FOR 2 DAYS IN A ROW
     Dates: start: 200909, end: 20090927
  2. TYLENOL [Suspect]
     Indication: ANALGESIC THERAPY
     Dosage: 2 TABLESPOONS 3 TIMES PER DAY FOR 2 DAYS IN A ROW
     Dates: start: 200909, end: 20090927
  3. MOTRIN [Suspect]
     Indication: PYREXIA
     Dates: start: 200909, end: 20090927
  4. GAVISCON NOS [Suspect]
     Indication: ABDOMINAL DISCOMFORT
     Dates: start: 200909

REACTIONS (2)
  - Acute hepatic failure [Recovered/Resolved]
  - Incorrect dose administered [Unknown]
